FAERS Safety Report 9536284 (Version 1)
Quarter: 2013Q2

REPORT INFORMATION
  Report Type: Spontaneous
  Country: US (occurrence: None)
  Receive Date: 20130517
  Receipt Date: 20130517
  Transmission Date: 20140414
  Serious: Yes (Other)
  Sender: FDA-Public Use
  Company Number: 1000044352

PATIENT
  Age: 53 Year
  Sex: Female

DRUGS (3)
  1. VIIBRYD (VILLAZODONE HYDROCHLORIDE) (10 MILLIGRAM, TABLETS) [Suspect]
     Indication: DEPRESSION
     Dosage: 10MG (10MG 1 IN 1 D) ORAL
     Route: 048
     Dates: start: 20130410
  2. TOPAMAX (TOPIRAMATE) (TOPIRAMATE) [Concomitant]
  3. BACLOFEN (BACLOFEN) (BACLOFEN) [Concomitant]

REACTIONS (1)
  - Diarrhoea [None]
